FAERS Safety Report 7335085-6 (Version None)
Quarter: 2011Q1

REPORT INFORMATION
  Report Type: 
  Country: None (occurrence: None)
  Receive Date: 20110307
  Receipt Date: 20110222
  Transmission Date: 20110831
  Serious: Yes (Death, Hospitalization)
  Sender: FDA-Public Use
  Company Number: US-ELI_LILLY_AND_COMPANY-US201102006487

PATIENT
  Age: 62 Year
  Sex: Male

DRUGS (10)
  1. FLUOXETINE HYDROCHLORIDE [Suspect]
  2. METHADONE [Concomitant]
  3. ZOLPIDEM [Concomitant]
  4. BUSPIRONE [Concomitant]
  5. TRAMADOL HCL [Concomitant]
  6. ALBUTEROL [Concomitant]
  7. DIAZEPAM [Concomitant]
  8. VENLAFAXINE [Concomitant]
  9. SIMVASTATIN [Concomitant]
  10. QUETIAPINE [Concomitant]

REACTIONS (1)
  - DEATH [None]
